FAERS Safety Report 10972121 (Version 1)
Quarter: 2015Q1

REPORT INFORMATION
  Report Type: Spontaneous
  Country: US (occurrence: None)
  Receive Date: 20150226
  Receipt Date: 20150226
  Transmission Date: 20150721
  Serious: Yes (Other)
  Sender: FDA-Public Use
  Company Number: TPA2012A03601

PATIENT
  Age: 78 Year
  Sex: Male
  Weight: 100.7 kg

DRUGS (7)
  1. DIABETA (GLYBURIDE) (GLIBENCLAMIDE) [Concomitant]
  2. GLUCOPHAGE [Concomitant]
     Active Substance: METFORMIN HYDROCHLORIDE
  3. LISPRO (HUMALOG) (INSULIN LISPRO) [Concomitant]
  4. ACTOS [Suspect]
     Active Substance: PIOGLITAZONE HYDROCHLORIDE
     Indication: TYPE 2 DIABETES MELLITUS
     Dates: start: 200709, end: 201012
  5. AVNDIA (ROSIGLITAZONE MALEATE) [Concomitant]
  6. GLARGINEL/LANTUS (INSULIN GLARGINE) [Concomitant]
  7. MICRONASE (GLIBENCLAMIDE) [Concomitant]

REACTIONS (1)
  - Bladder cancer [None]

NARRATIVE: CASE EVENT DATE: 20110114
